FAERS Safety Report 8455359-5 (Version None)
Quarter: 2012Q2

REPORT INFORMATION
  Report Type: 
  Country: None (occurrence: None)
  Receive Date: 20120621
  Receipt Date: 20120611
  Transmission Date: 20120825
  Serious: Yes (Other)
  Sender: FDA-Public Use
  Company Number: US-ELI_LILLY_AND_COMPANY-US201105007065

PATIENT
  Sex: Female

DRUGS (3)
  1. FORTEO [Suspect]
     Dosage: 20 UG, QD
  2. FORTEO [Suspect]
     Indication: OSTEOPOROSIS
     Dosage: UNK, UNKNOWN
     Route: 065
     Dates: start: 20110517
  3. FORTEO [Suspect]
     Dosage: 20 UG, QD

REACTIONS (5)
  - FATIGUE [None]
  - BACK PAIN [None]
  - PALPITATIONS [None]
  - ARTHRALGIA [None]
  - SKIN CANCER [None]
